FAERS Safety Report 17907134 (Version 2)
Quarter: 2021Q1

REPORT INFORMATION
  Report Type: Other
  Country: US (occurrence: US)
  Receive Date: 20200617
  Receipt Date: 20210125
  Transmission Date: 20210419
  Serious: No
  Sender: FDA-Public Use
  Company Number: US-ROCHE-2618562

PATIENT
  Age: 58 Year
  Sex: Female
  Weight: 59.02 kg

DRUGS (24)
  1. OCREVUS [Suspect]
     Active Substance: OCRELIZUMAB
     Route: 042
  2. GABAPENTIN. [Concomitant]
     Active Substance: GABAPENTIN
     Indication: NEURALGIA
     Route: 048
     Dates: start: 1999
  3. CITRACAL PETITES [Concomitant]
     Active Substance: CALCIUM CITRATE
     Route: 048
  4. SCHIFF DIGESTIVE ADVANTAGE [Concomitant]
  5. CENTRUM SILVER [Concomitant]
     Active Substance: MINERALS\VITAMINS
     Route: 048
  6. IMODIUM [Concomitant]
     Active Substance: LOPERAMIDE HYDROCHLORIDE
     Dosage: 4 CAPSULES
     Route: 048
  7. BENTYL [Concomitant]
     Active Substance: DICYCLOMINE HYDROCHLORIDE
     Route: 048
  8. ASPIRIN. [Concomitant]
     Active Substance: ASPIRIN
     Indication: MIGRAINE
     Route: 048
  9. CARBAMAZEPINE. [Concomitant]
     Active Substance: CARBAMAZEPINE
     Indication: PAIN
     Dosage: AND AS NEEDED
     Route: 048
  10. TIZANIDINE. [Concomitant]
     Active Substance: TIZANIDINE
     Dosage: AT BEDTIME
     Route: 048
     Dates: start: 1999
  11. DULOXETINE. [Concomitant]
     Active Substance: DULOXETINE
     Indication: PAIN
     Route: 048
  12. LEVSIN [Concomitant]
     Active Substance: HYOSCYAMINE SULFATE
     Route: 060
  13. LYSINE [Concomitant]
     Active Substance: LYSINE
     Indication: GENITAL HERPES
     Route: 048
  14. ESTRADIOL. [Concomitant]
     Active Substance: ESTRADIOL
     Indication: MENOPAUSE
     Dosage: 0.01%
     Route: 067
     Dates: start: 2017
  15. OCREVUS [Suspect]
     Active Substance: OCRELIZUMAB
     Indication: RELAPSING MULTIPLE SCLEROSIS
     Route: 042
     Dates: start: 201811
  16. ZOFRAN [Concomitant]
     Active Substance: ONDANSETRON HYDROCHLORIDE
     Indication: NAUSEA
     Route: 048
     Dates: start: 201911
  17. FERROUS GLUCONATE [Concomitant]
     Active Substance: FERROUS GLUCONATE
     Indication: SERUM FERRITIN DECREASED
     Route: 048
     Dates: start: 2019
  18. EUFLEXXA [Concomitant]
     Active Substance: HYALURONATE SODIUM
     Indication: OSTEOARTHRITIS
  19. BENEFIBER [Concomitant]
     Active Substance: STARCH, WHEAT
     Dosage: ONE TABLESPOON OF POWDER IN A GLASS OF WATER
     Route: 048
     Dates: start: 2016
  20. ASPERCREME (UNK INGREDIENTS) [Concomitant]
  21. OCREVUS [Suspect]
     Active Substance: OCRELIZUMAB
     Indication: RELAPSING-REMITTING MULTIPLE SCLEROSIS
     Dosage: INFUSE 300 MG DAY 1 , THEN 300 MG DAY 14?DATES OF TREATMENT: 20/NOV/2018, 23/MAY/2019, 22/NOV/2019,
     Route: 042
     Dates: start: 20181205
  22. TYLENOL 8HR [Concomitant]
     Active Substance: ACETAMINOPHEN
     Indication: OSTEOARTHRITIS
     Route: 048
  23. AZELASTINE HCL [Concomitant]
     Active Substance: AZELASTINE HYDROCHLORIDE
     Dosage: ONE SPRAY TWICE A DAY
     Route: 045
     Dates: start: 2019
  24. BENADRYL [Concomitant]
     Active Substance: DIPHENHYDRAMINE HYDROCHLORIDE
     Indication: PRURITUS
     Route: 048
     Dates: start: 201811

REACTIONS (14)
  - Urinary tract infection [Recovered/Resolved]
  - Nausea [Not Recovered/Not Resolved]
  - Haemorrhage [Not Recovered/Not Resolved]
  - Blood immunoglobulin M decreased [Unknown]
  - Fall [Unknown]
  - Dyspnoea [Not Recovered/Not Resolved]
  - Pain [Recovered/Resolved]
  - Tooth fracture [Recovered/Resolved]
  - Skin ulcer [Not Recovered/Not Resolved]
  - Diarrhoea [Recovered/Resolved]
  - Thinking abnormal [Not Recovered/Not Resolved]
  - Pruritus [Recovered/Resolved]
  - Serum ferritin decreased [Not Recovered/Not Resolved]
  - Initial insomnia [Not Recovered/Not Resolved]

NARRATIVE: CASE EVENT DATE: 201811
